FAERS Safety Report 5845002-3 (Version None)
Quarter: 2008Q3

REPORT INFORMATION
  Report Type: 
  Country: None (occurrence: None)
  Receive Date: 20080813
  Receipt Date: 20080813
  Transmission Date: 20090109
  Serious: Yes (Hospitalization)
  Sender: FDA-Public Use
  Company Number: None

PATIENT
  Age: 65 Year
  Sex: Male
  Weight: 81.6475 kg

DRUGS (1)
  1. BENICAR [Suspect]
     Indication: HYPERTENSION
     Dosage: ONCE DAILY PO
     Route: 048
     Dates: start: 20040102, end: 20040601

REACTIONS (3)
  - ARRHYTHMIA [None]
  - DIZZINESS [None]
  - EXTRASYSTOLES [None]
